FAERS Safety Report 8245370-1 (Version None)
Quarter: 2012Q1

REPORT INFORMATION
  Report Type: 
  Country: None (occurrence: None)
  Receive Date: 20120329
  Receipt Date: 20120320
  Transmission Date: 20120608
  Serious: Yes (Other)
  Sender: FDA-Public Use
  Company Number: JP-VALEANT-2012VX001362

PATIENT

DRUGS (6)
  1. FLUOROURACIL [Suspect]
     Indication: GASTRIC CANCER STAGE IV
     Route: 040
  2. RANITIDINE [Concomitant]
     Indication: HYPERSENSITIVITY
     Route: 065
  3. LEUCOVORIN CALCIUM [Suspect]
     Indication: GASTRIC CANCER STAGE IV
     Route: 042
  4. PACLITAXEL [Suspect]
     Indication: GASTRIC CANCER STAGE IV
     Route: 042
  5. CHLORPHENIRAMINE MALEATE [Concomitant]
     Indication: HYPERSENSITIVITY
     Route: 065
  6. DEXAMETHASONE [Concomitant]
     Indication: HYPERSENSITIVITY
     Route: 065

REACTIONS (1)
  - PNEUMONIA [None]
